FAERS Safety Report 7494840-2 (Version None)
Quarter: 2011Q2

REPORT INFORMATION
  Report Type: 
  Country: None (occurrence: None)
  Receive Date: 20110520
  Receipt Date: 20110506
  Transmission Date: 20111010
  Serious: Yes (Death, Hospitalization)
  Sender: FDA-Public Use
  Company Number: B0720466A

PATIENT
  Age: 9 Year
  Sex: Male

DRUGS (5)
  1. DIAZEPAM [Concomitant]
  2. VITAMIN K TAB [Concomitant]
  3. LAMOTRIGINE [Suspect]
     Route: 065
  4. THIOPENTAL SODIUM [Concomitant]
  5. LEVETIRACETAM [Suspect]
     Route: 065

REACTIONS (15)
  - HYPERPYREXIA [None]
  - ENCEPHALOPATHY [None]
  - ACUTE HEPATIC FAILURE [None]
  - DEVELOPMENTAL DELAY [None]
  - DYSTONIA [None]
  - CONVULSION [None]
  - METABOLIC ACIDOSIS [None]
  - MOVEMENT DISORDER [None]
  - STATUS EPILEPTICUS [None]
  - RHABDOMYOLYSIS [None]
  - NEUROLOGICAL DECOMPENSATION [None]
  - CARDIO-RESPIRATORY ARREST [None]
  - AUTISM [None]
  - ELECTROENCEPHALOGRAM ABNORMAL [None]
  - APHASIA [None]
